FAERS Safety Report 10432288 (Version 1)
Quarter: 2014Q3

REPORT INFORMATION
  Report Type: Spontaneous
  Country: US (occurrence: None)
  Receive Date: 20140904
  Receipt Date: 20140904
  Transmission Date: 20150326
  Serious: Yes (Hospitalization)
  Sender: FDA-Public Use
  Company Number: None

PATIENT
  Age: 42 Year
  Sex: Female
  Weight: 57.15 kg

DRUGS (1)
  1. LIPITOR [Suspect]
     Active Substance: ATORVASTATIN CALCIUM
     Indication: BLOOD CHOLESTEROL
     Dosage: LIPITOR/ 10 MG ONCE DAILY TAKEN BY MOUTH
     Route: 048

REACTIONS (3)
  - Eyelid ptosis [None]
  - Ophthalmoplegia [None]
  - Diplopia [None]

NARRATIVE: CASE EVENT DATE: 20140801
